FAERS Safety Report 11093973 (Version 2)
Quarter: 2018Q1

REPORT INFORMATION
  Report Type: Spontaneous
  Country: US (occurrence: US)
  Receive Date: 20150506
  Receipt Date: 20180315
  Transmission Date: 20180508
  Serious: Yes (Hospitalization, Other)
  Sender: FDA-Public Use
  Company Number: US-ENDO PHARMACEUTICALS INC.-201412065

PATIENT
  Age: 42 Year
  Sex: Male
  Weight: 95.24 kg

DRUGS (4)
  1. TESTOPEL [Suspect]
     Active Substance: TESTOSTERONE
     Indication: HYPOGONADISM
     Dosage: UNK UNKNOWN, UNKNOWN
     Route: 058
     Dates: start: 20111107, end: 20120105
  2. DEPO-TESTOSTERONE [Suspect]
     Active Substance: TESTOSTERONE CYPIONATE
     Indication: LIBIDO DECREASED
     Dosage: UNK UNKNOWN, UNKNOWN
     Dates: start: 201204
  3. DEPO-TESTOSTERONE [Suspect]
     Active Substance: TESTOSTERONE CYPIONATE
     Indication: ERECTILE DYSFUNCTION
     Route: 065
     Dates: start: 20100720, end: 201110
  4. TESTOPEL [Suspect]
     Active Substance: TESTOSTERONE
     Indication: ERECTILE DYSFUNCTION

REACTIONS (11)
  - Cardiac disorder [Unknown]
  - Ventricular extrasystoles [Unknown]
  - Transient ischaemic attack [Unknown]
  - Chest pain [Unknown]
  - Prescribed overdose [Unknown]
  - Acute kidney injury [Unknown]
  - Pulmonary arterial hypertension [Unknown]
  - Pulmonary embolism [Unknown]
  - Deep vein thrombosis [Unknown]
  - Penile contusion [Unknown]
  - Emotional distress [Unknown]

NARRATIVE: CASE EVENT DATE: 201111
